FAERS Safety Report 11554932 (Version 1)
Quarter: 2015Q3

REPORT INFORMATION
  Report Type: Spontaneous
  Country: US (occurrence: US)
  Receive Date: 20150903
  Receipt Date: 20150903
  Transmission Date: 20151125
  Serious: No
  Sender: FDA-Public Use
  Company Number: US-ELI_LILLY_AND_COMPANY-US201009005698

PATIENT
  Sex: Female

DRUGS (1)
  1. HUMALOG [Suspect]
     Active Substance: INSULIN LISPRO
     Dosage: UNK, OTHER
     Dates: start: 19900917

REACTIONS (4)
  - Nasopharyngitis [Unknown]
  - Cough [Unknown]
  - Respiratory tract congestion [Unknown]
  - Sinus headache [Unknown]

NARRATIVE: CASE EVENT DATE: 20100913
